FAERS Safety Report 9357015 (Version 1)
Quarter: 2013Q2

REPORT INFORMATION
  Report Type: Spontaneous
  Country: FR (occurrence: None)
  Receive Date: 20130617
  Receipt Date: 20130617
  Transmission Date: 20140414
  Serious: Yes (Death, Life-Threatening, Hospitalization)
  Sender: FDA-Public Use
  Company Number: 7216350

PATIENT
  Age: 79 Year
  Sex: Female

DRUGS (2)
  1. PREVISCAN [Suspect]
     Indication: ATRIAL FIBRILLATION
     Route: 048
  2. LEVOTHYROX [Suspect]
     Indication: HYPOTHYROIDISM
     Route: 048

REACTIONS (8)
  - Peritoneal haematoma [None]
  - Shock haemorrhagic [None]
  - Fall [None]
  - General physical health deterioration [None]
  - Renal failure acute [None]
  - Acute hepatic failure [None]
  - Multi-organ failure [None]
  - Escherichia infection [None]
